FAERS Safety Report 19712041 (Version 6)
Quarter: 2022Q2

REPORT INFORMATION
  Report Type: Report from Study
  Country: GB (occurrence: GB)
  Receive Date: 20210816
  Receipt Date: 20220616
  Transmission Date: 20220720
  Serious: Yes (Hospitalization, Other)
  Sender: FDA-Public Use
  Company Number: GB-PFIZER INC-202100933803

PATIENT

DRUGS (9)
  1. TOZINAMERAN [Suspect]
     Active Substance: TOZINAMERAN
     Indication: COVID-19 immunisation
     Dosage: DOSE 2, SINGLE
     Route: 050
     Dates: start: 20210628, end: 20210628
  2. TOZINAMERAN [Suspect]
     Active Substance: TOZINAMERAN
     Indication: COVID-19 immunisation
     Dosage: DOSE 2, SINGLE
     Route: 050
     Dates: start: 20210628, end: 20210628
  3. PLACEBO [Suspect]
     Active Substance: UNSPECIFIED INGREDIENT
     Indication: COVID-19 immunisation
     Dosage: DOSE 2, SINGLE
     Route: 050
     Dates: start: 20210628, end: 20210628
  4. TOZINAMERAN [Suspect]
     Active Substance: TOZINAMERAN
     Dosage: DOSE 1, SINGLE
     Route: 050
     Dates: start: 20210607, end: 20210607
  5. TOZINAMERAN [Suspect]
     Active Substance: TOZINAMERAN
     Dosage: DOSE 1, SINGLE
     Route: 050
     Dates: start: 20210607, end: 20210607
  6. PLACEBO [Suspect]
     Active Substance: UNSPECIFIED INGREDIENT
     Dosage: DOSE 1, SINGLE
     Route: 050
     Dates: start: 20210607, end: 20210607
  7. DINOPROSTONE [Suspect]
     Active Substance: DINOPROSTONE
     Indication: Labour induction
     Dosage: 2 MG, ONCE
     Route: 064
     Dates: start: 20210716, end: 20210718
  8. SYNTOCINON [Suspect]
     Active Substance: OXYTOCIN
     Indication: Labour induction
     Dosage: 40 IU, ONCE
     Route: 064
     Dates: start: 20210718, end: 20210718
  9. SYNTOCINON [Suspect]
     Active Substance: OXYTOCIN
     Indication: Postpartum haemorrhage
     Dosage: 10 IU, ONCE
     Route: 064
     Dates: start: 20210718, end: 20210718

REACTIONS (2)
  - Maternal exposure during pregnancy [Recovered/Resolved]
  - Foetal hypokinesia [Recovered/Resolved]

NARRATIVE: CASE EVENT DATE: 20210607
